FAERS Safety Report 9941031 (Version 1)
Quarter: 2014Q1

REPORT INFORMATION
  Report Type: Spontaneous
  Country: DE (occurrence: DE)
  Receive Date: 20140303
  Receipt Date: 20140303
  Transmission Date: 20141002
  Serious: Yes (Other)
  Sender: FDA-Public Use
  Company Number: DE-ELI_LILLY_AND_COMPANY-DE201402006102

PATIENT
  Sex: Male

DRUGS (1)
  1. ZYPADHERA [Suspect]
     Indication: SCHIZOPHRENIA
     Dosage: 405 MG, UNKNOWN
     Route: 030
     Dates: start: 201010

REACTIONS (5)
  - Disturbance in attention [Recovered/Resolved]
  - Hypotension [Recovered/Resolved]
  - Dyskinesia [Recovered/Resolved]
  - Sedation [Recovered/Resolved]
  - Agitation [Recovered/Resolved]
